FAERS Safety Report 6155993-1 (Version None)
Quarter: 2009Q2

REPORT INFORMATION
  Report Type: 
  Country: None (occurrence: None)
  Receive Date: 20090415
  Receipt Date: 20090409
  Transmission Date: 20091009
  Serious: Yes (Death)
  Sender: FDA-Public Use
  Company Number: US-CELGENEUS-163-21880-09030949

PATIENT
  Sex: Male

DRUGS (1)
  1. REVLIMID [Suspect]
     Indication: MULTIPLE MYELOMA
     Route: 048
     Dates: start: 20090105, end: 20090114

REACTIONS (7)
  - DEATH [None]
  - DECREASED APPETITE [None]
  - DECUBITUS ULCER [None]
  - DIARRHOEA [None]
  - FATIGUE [None]
  - INCONTINENCE [None]
  - INFECTION [None]
